FAERS Safety Report 8997919 (Version 2)
Quarter: 2013Q1

REPORT INFORMATION
  Report Type: Spontaneous
  Country: US (occurrence: US)
  Receive Date: 20130104
  Receipt Date: 20130107
  Transmission Date: 20140127
  Serious: Yes (Hospitalization)
  Sender: FDA-Public Use
  Company Number: US-BRISTOL-MYERS SQUIBB COMPANY-17245127

PATIENT
  Age: 74 Year
  Sex: Female
  Weight: 62.58 kg

DRUGS (4)
  1. ORENCIA [Suspect]
     Indication: RHEUMATOID ARTHRITIS
     Route: 042
     Dates: start: 20121218
  2. ONGLYZA TABS [Suspect]
  3. ASPIRIN [Concomitant]
  4. PREDNISONE [Concomitant]

REACTIONS (3)
  - Rheumatoid arthritis [Not Recovered/Not Resolved]
  - Oral pain [Not Recovered/Not Resolved]
  - Drug ineffective [Unknown]
